FAERS Safety Report 9183635 (Version 1)
Quarter: 2012Q4

REPORT INFORMATION
  Report Type: 
  Country: SG (occurrence: SG)
  Receive Date: 20121101
  Receipt Date: 20121101
  Transmission Date: 20130627
  Serious: Yes (Disabling, Other)
  Sender: FDA-Public Use
  Company Number: SG-ASTRAZENECA-2012SE81254

PATIENT
  Age: 61 Year
  Sex: Male

DRUGS (3)
  1. CRESTOR [Suspect]
     Route: 048
  2. PARACETAMOL [Concomitant]
  3. AVELOX [Concomitant]

REACTIONS (2)
  - Hypokalaemia [Recovered/Resolved]
  - Muscular weakness [Unknown]
